FAERS Safety Report 6692384 (Version 4)
Quarter: 2017Q2

REPORT INFORMATION
  Report Type: Report from Study
  Country: FR (occurrence: FR)
  Receive Date: 20080707
  Receipt Date: 20170421
  Transmission Date: 20170830
  Serious: Yes (Death, Hospitalization, Other)
  Sender: FDA-Public Use
  Company Number: FR-PFIZER INC-2008054384

PATIENT
  Age: 75 Year
  Sex: Male
  Weight: 66 kg

DRUGS (4)
  1. LEVOTHYROXINE SODIUM. [Concomitant]
     Active Substance: LEVOTHYROXINE SODIUM
     Indication: THYROIDECTOMY
     Dosage: 50 UG,DAILY
     Dates: start: 2006
  2. SUNITINIB MALATE. [Suspect]
     Active Substance: SUNITINIB MALATE
     Indication: THYROID CANCER
     Dosage: 25 MG, 1X/DAY
     Dates: start: 20080412, end: 20080509
  3. FORMOTEROL W/BUDESONIDE [Concomitant]
     Active Substance: BUDESONIDE\FORMOTEROL
     Indication: ASTHMA
     Dosage: ONE BREATH DAILY
     Dates: start: 1998
  4. LENOGRASTIM [Concomitant]
     Active Substance: LENOGRASTIM
     Indication: LEUKOPENIA
     Dosage: ONE INJECTION PER DAY
     Route: 058
     Dates: start: 20080607, end: 20080612

REACTIONS (4)
  - Pericardial effusion [Fatal]
  - Thyroid cancer [Fatal]
  - Atrial fibrillation [Unknown]
  - Disease progression [Fatal]

NARRATIVE: CASE EVENT DATE: 20080613
